FAERS Safety Report 13139790 (Version 1)
Quarter: 2017Q1

REPORT INFORMATION
  Report Type: Spontaneous
  Country: US (occurrence: US)
  Receive Date: 20170123
  Receipt Date: 20170123
  Transmission Date: 20170428
  Serious: No
  Sender: FDA-Public Use
  Company Number: US-PFIZER INC-2017026762

PATIENT
  Age: 54 Year
  Sex: Male

DRUGS (1)
  1. GENOTROPIN MQ [Suspect]
     Active Substance: SOMATROPIN
     Dosage: UNK (0.8 MINIQUICKS)
     Dates: start: 200204

REACTIONS (3)
  - Injection site bruising [Unknown]
  - Malaise [Unknown]
  - Injection site pain [Unknown]
